FAERS Safety Report 5290943-1 (Version None)
Quarter: 2007Q2

REPORT INFORMATION
  Report Type: 
  Country: None (occurrence: None)
  Receive Date: 20070409
  Receipt Date: 20070326
  Transmission Date: 20071010
  Serious: Yes (Hospitalization, Disabling, Other)
  Sender: FDA-Public Use
  Company Number: US-PFIZER INC-2007024911

PATIENT
  Sex: Male
  Weight: 93 kg

DRUGS (2)
  1. CELEBREX [Suspect]
     Indication: PAIN MANAGEMENT
  2. BEXTRA [Suspect]
     Indication: NECK PAIN
     Dates: start: 20041001

REACTIONS (3)
  - ACUTE MYOCARDIAL INFARCTION [None]
  - AMNESIA [None]
  - BALANCE DISORDER [None]
